FAERS Safety Report 26032343 (Version 2)
Quarter: 2025Q4

REPORT INFORMATION
  Report Type: Spontaneous
  Country: US (occurrence: US)
  Receive Date: 20251112
  Receipt Date: 20251112
  Transmission Date: 20260118
  Serious: No
  Sender: ALEXION PHARMACEUTICALS
  Company Number: US-AstraZeneca-CH-00979414A

PATIENT
  Sex: Male

DRUGS (2)
  1. FASENRA [Suspect]
     Active Substance: BENRALIZUMAB
     Dosage: UNK
     Route: 065
  2. FASENRA [Suspect]
     Active Substance: BENRALIZUMAB

REACTIONS (6)
  - Nasal congestion [Not Recovered/Not Resolved]
  - Eye pruritus [Unknown]
  - Lacrimation increased [Unknown]
  - Sneezing [Unknown]
  - Pruritus [Unknown]
  - Ocular hyperaemia [Unknown]
